FAERS Safety Report 8009495-8 (Version None)
Quarter: 2011Q4

REPORT INFORMATION
  Report Type: 
  Country: None (occurrence: None)
  Receive Date: 20111227
  Receipt Date: 20111214
  Transmission Date: 20120403
  Serious: Yes (Hospitalization, Other)
  Sender: FDA-Public Use
  Company Number: AU-ELI_LILLY_AND_COMPANY-AU201112003562

PATIENT
  Sex: Female

DRUGS (1)
  1. FORTEO [Suspect]
     Indication: OSTEOPOROSIS
     Dosage: UNK, QD
     Dates: start: 20110406

REACTIONS (5)
  - FALL [None]
  - CEREBRAL HAEMORRHAGE [None]
  - UPPER LIMB FRACTURE [None]
  - HEAD INJURY [None]
  - LOSS OF CONSCIOUSNESS [None]
